FAERS Safety Report 12157740 (Version 1)
Quarter: 2016Q1

REPORT INFORMATION
  Report Type: Spontaneous
  Country: US (occurrence: None)
  Receive Date: 20160307
  Receipt Date: 20160307
  Transmission Date: 20160526
  Serious: Yes (Life-Threatening)
  Sender: FDA-Public Use
  Company Number: None

PATIENT
  Age: 68 Year
  Sex: Female
  Weight: 99.79 kg

DRUGS (8)
  1. VITAMIN D2 [Concomitant]
     Active Substance: ERGOCALCIFEROL
  2. TYLENOL [Concomitant]
     Active Substance: ACETAMINOPHEN
  3. PREMARIN [Concomitant]
     Active Substance: ESTROGENS, CONJUGATED
  4. VALSARTAN/HCTZ 320/25 DF [Suspect]
     Active Substance: HYDROCHLOROTHIAZIDE\VALSARTAN
     Indication: HYPERTENSION
     Route: 048
     Dates: start: 20150601, end: 20151123
  5. PROTONIX [Concomitant]
     Active Substance: PANTOPRAZOLE SODIUM
  6. ALPRAZOLAM. [Concomitant]
     Active Substance: ALPRAZOLAM
  7. SYNTHROID [Concomitant]
     Active Substance: LEVOTHYROXINE SODIUM
  8. METOPROLOL SUCC. [Concomitant]

REACTIONS (2)
  - Product substitution issue [None]
  - Blood pressure increased [None]
